FAERS Safety Report 23752437 (Version 2)
Quarter: 2024Q2

REPORT INFORMATION
  Report Type: Spontaneous
  Country: GB (occurrence: GB)
  Receive Date: 20240417
  Receipt Date: 20240429
  Transmission Date: 20240716
  Serious: Yes (Other)
  Sender: FDA-Public Use
  Company Number: GB-VERTEX PHARMACEUTICALS-2024-006598

PATIENT
  Age: 25 Year
  Sex: Male

DRUGS (2)
  1. ELEXACAFTOR\IVACAFTOR\TEZACAFTOR [Suspect]
     Active Substance: ELEXACAFTOR\IVACAFTOR\TEZACAFTOR
     Indication: Cystic fibrosis
     Dosage: IVA/ TEZA/ ELEXA, UNKNOWN
     Route: 048
     Dates: start: 20201001
  2. PARAVIT CF [Concomitant]

REACTIONS (1)
  - Vitamin A increased [Not Recovered/Not Resolved]

NARRATIVE: CASE EVENT DATE: 20220301
